FAERS Safety Report 10251211 (Version 1)
Quarter: 2014Q2

REPORT INFORMATION
  Report Type: Spontaneous
  Country: US (occurrence: US)
  Receive Date: 20140620
  Receipt Date: 20140620
  Transmission Date: 20141212
  Serious: No
  Sender: FDA-Public Use
  Company Number: US-ASTRAZENECA-2014SE39597

PATIENT
  Age: 82 Year
  Sex: Female

DRUGS (1)
  1. NEXIUM 24HR [Suspect]
     Indication: PARANASAL SINUS HYPERSECRETION
     Route: 048

REACTIONS (3)
  - Dizziness [Unknown]
  - Diarrhoea [Unknown]
  - Intentional product misuse [Unknown]
